FAERS Safety Report 6283647-X (Version None)
Quarter: 2009Q3

REPORT INFORMATION
  Report Type: 
  Country: None (occurrence: None)
  Receive Date: 20090724
  Receipt Date: 20090722
  Transmission Date: 20100115
  Serious: Yes (Life-Threatening)
  Sender: FDA-Public Use
  Company Number: PHEH2009US08017

PATIENT
  Sex: Female

DRUGS (1)
  1. TEKTURNA [Suspect]
     Dosage: 150 MG, UNK

REACTIONS (4)
  - EXPIRED DRUG ADMINISTERED [None]
  - FEELING ABNORMAL [None]
  - MALAISE [None]
  - PAIN IN EXTREMITY [None]
